FAERS Safety Report 5698456-X (Version None)
Quarter: 2008Q2

REPORT INFORMATION
  Report Type: 
  Country: None (occurrence: None)
  Receive Date: 20080408
  Receipt Date: 20070205
  Transmission Date: 20081010
  Serious: Yes (Other)
  Sender: FDA-Public Use
  Company Number: US-BAYER-US-2006-007893

PATIENT
  Age: 59 Year
  Sex: Female
  Weight: 71 kg

DRUGS (13)
  1. CLIMARA [Suspect]
     Indication: MENOPAUSAL SYMPTOMS
     Route: 062
     Dates: start: 19970101, end: 19980101
  2. PREMARIN [Suspect]
     Indication: MENOPAUSAL SYMPTOMS
     Dates: start: 19910101, end: 19940101
  3. OGEN [Suspect]
     Indication: MENOPAUSAL SYMPTOMS
     Dates: start: 19910101, end: 19910101
  4. PROVERA [Suspect]
     Indication: MENOPAUSAL SYMPTOMS
     Dates: start: 19910101
  5. PROVERA [Suspect]
  6. PROVERA [Suspect]
     Dates: end: 19990101
  7. ESTRATEST [Suspect]
     Indication: MENOPAUSAL SYMPTOMS
     Dates: start: 19910101, end: 19920101
  8. ESTRACE [Suspect]
     Indication: MENOPAUSAL SYMPTOMS
     Dates: start: 19920101, end: 19970101
  9. MEDROXYPROGESTERONE [Suspect]
     Indication: MENOPAUSAL SYMPTOMS
     Dates: start: 19930101, end: 19950101
  10. ACTIVELLA [Suspect]
     Indication: MENOPAUSAL SYMPTOMS
     Dates: start: 20000101, end: 20010101
  11. PREMPRO [Suspect]
     Indication: MENOPAUSAL SYMPTOMS
  12. MENEST [Suspect]
     Indication: MENOPAUSAL SYMPTOMS
     Dates: start: 19990101, end: 20000101
  13. ESTRATAB [Suspect]
     Indication: MENOPAUSAL SYMPTOMS
     Dates: start: 19980101, end: 19990101

REACTIONS (1)
  - BREAST CANCER FEMALE [None]
